FAERS Safety Report 5975193-5 (Version None)
Quarter: 2008Q4

REPORT INFORMATION
  Report Type: 
  Country: None (occurrence: None)
  Receive Date: 20081202
  Receipt Date: 20080918
  Transmission Date: 20090506
  Serious: No
  Sender: FDA-Public Use
  Company Number: US-ABBOTT-08P-163-0476855-00

PATIENT
  Sex: Female
  Weight: 63.56 kg

DRUGS (12)
  1. LUPRON DEPOT [Suspect]
     Indication: ENDOMETRIOSIS
     Route: 058
     Dates: start: 20010201, end: 20010801
  2. LUPRON DEPOT [Suspect]
     Route: 058
     Dates: start: 20060101
  3. EVAMIST [Interacting]
     Indication: SUPPLEMENTATION THERAPY
     Dosage: 1.53MG 1-2 X DAILY, SPRAY
     Dates: start: 20080801
  4. LANSOPRAZOLE [Concomitant]
     Indication: GASTROOESOPHAGEAL REFLUX DISEASE
     Route: 048
     Dates: start: 20060101
  5. CITALOPRAM HYDROBROMIDE [Concomitant]
     Indication: DEPRESSION
     Route: 048
     Dates: start: 20020101
  6. CYPROHEPTADINE HCL [Concomitant]
     Indication: ENDOMETRIOSIS
     Dosage: 10-20 GTTS BID
     Route: 048
     Dates: start: 20020101
  7. DUACT [Concomitant]
     Indication: HYPERSENSITIVITY
     Dosage: 60MG DAILY DOSE, 2-4 X/DAY PRN
     Route: 048
     Dates: start: 19990101
  8. ERGOCALCIFEROL [Concomitant]
     Indication: VITAMIN D DEFICIENCY
     Route: 048
     Dates: start: 20080701
  9. ALPRAZOLAM [Concomitant]
     Indication: ENDOMETRIOSIS
     Dosage: 0.5MG TWO PILLS 4X/DAY
     Route: 048
     Dates: start: 20011101
  10. THYROID TAB [Concomitant]
     Indication: HYPOTHYROIDISM
     Route: 048
     Dates: start: 20060101
  11. MOMETASONE FUROATE [Concomitant]
     Indication: HYPERSENSITIVITY
     Dates: start: 20050101
  12. MAGNESIUM OXIDE [Concomitant]
     Indication: DRUG USE FOR UNKNOWN INDICATION
     Route: 048
     Dates: start: 20040101

REACTIONS (14)
  - ANXIETY [None]
  - BONE DENSITY DECREASED [None]
  - CONSTIPATION [None]
  - DEPRESSION [None]
  - DRUG INTERACTION [None]
  - FATIGUE [None]
  - GASTROOESOPHAGEAL REFLUX DISEASE [None]
  - MENORRHAGIA [None]
  - MIGRAINE [None]
  - NAUSEA [None]
  - OEDEMA [None]
  - OFF LABEL USE [None]
  - PAIN OF SKIN [None]
  - WEIGHT INCREASED [None]
